FAERS Safety Report 5152924-8 (Version None)
Quarter: 2006Q3

REPORT INFORMATION
  Report Type: 
  Country: None (occurrence: None)
  Receive Date: 20060627
  Receipt Date: 20060627
  Transmission Date: 20061208
  Serious: Yes (Hospitalization)
  Sender: FDA-Public Use
  Company Number: None

PATIENT
  Age: 65 Year
  Sex: Female

DRUGS (2)
  1. COZAAR [Suspect]
     Dosage: 90 TABS  TABLETS
  2. CLOZARIL [Suspect]
     Dosage: 100 TABS  TABLETS

REACTIONS (6)
  - DRUG DISPENSING ERROR [None]
  - HALLUCINATION [None]
  - HOSPITALISATION [None]
  - LETHARGY [None]
  - MEDICATION ERROR [None]
  - WRONG DRUG ADMINISTERED [None]
